FAERS Safety Report 22608922 (Version 1)
Quarter: 2023Q2

REPORT INFORMATION
  Report Type: Report from Study
  Country: KR (occurrence: KR)
  Receive Date: 20230616
  Receipt Date: 20230616
  Transmission Date: 20230722
  Serious: Yes (Death)
  Sender: FDA-Public Use
  Company Number: KR-CHUGAI-2023010894

PATIENT
  Age: 72 Year
  Sex: Female

DRUGS (3)
  1. TOCILIZUMAB [Suspect]
     Active Substance: TOCILIZUMAB
     Indication: Cytokine release syndrome
     Route: 042
     Dates: start: 20201223, end: 20201223
  2. TOCILIZUMAB [Suspect]
     Active Substance: TOCILIZUMAB
     Route: 042
     Dates: start: 20201224, end: 20201224
  3. EPCORITAMAB [Concomitant]
     Active Substance: EPCORITAMAB
     Indication: Cytokine release syndrome
     Route: 065
     Dates: start: 20201207, end: 20201214

REACTIONS (1)
  - Death [Fatal]
